FAERS Safety Report 7406481-3 (Version None)
Quarter: 2011Q2

REPORT INFORMATION
  Report Type: 
  Country: None (occurrence: None)
  Receive Date: 20110406
  Receipt Date: 20110406
  Transmission Date: 20111010
  Serious: Yes (Life-Threatening, Hospitalization, Disabling)
  Sender: FDA-Public Use
  Company Number: None

PATIENT
  Sex: Female
  Weight: 86.1834 kg

DRUGS (2)
  1. ACTONEL 35 MG PROCTOR + GAMBLE PHAR [Suspect]
     Indication: OSTEOPOROSIS
     Dosage: 1 WEEK PO
     Route: 048
     Dates: start: 20040101, end: 20061201
  2. FOSAMAX PLUS D [Suspect]
     Indication: OSTEOPOROSIS
     Dosage: 1 WEEKLY PO
     Route: 048
     Dates: start: 20060101, end: 20101201

REACTIONS (1)
  - ATRIAL FIBRILLATION [None]
